FAERS Safety Report 4266095-3 (Version None)
Quarter: 2004Q1

REPORT INFORMATION
  Report Type: 
  Country: None (occurrence: None)
  Receive Date: 20040106
  Receipt Date: 20031229
  Transmission Date: 20041129
  Serious: Yes (Other)
  Sender: FDA-Public Use
  Company Number: 163-20785-03110515

PATIENT
  Age: 37 Year
  Sex: Female
  Weight: 100.2449 kg

DRUGS (6)
  1. THALOMID [Suspect]
     Indication: MULTIPLE MYELOMA
     Dosage: 100 MG, DAILY, ORAL
     Route: 048
     Dates: start: 20001201, end: 20031103
  2. THALOMID [Suspect]
     Indication: XANTHOGRANULOMA
     Dosage: 100 MG, DAILY, ORAL
     Route: 048
     Dates: start: 20001201, end: 20031103
  3. SENOKOT [Concomitant]
  4. FOLIC ACID [Concomitant]
  5. VITAMIN B-COMPLEX(VITAMIN B-COMPLEX) [Concomitant]
  6. ATENOLOL [Concomitant]

REACTIONS (15)
  - BLOOD CHOLESTEROL INCREASED [None]
  - CONSTIPATION [None]
  - FOCAL NODULAR HYPERPLASIA [None]
  - HAEMATOCRIT INCREASED [None]
  - HEPATIC ADENOMA [None]
  - HOARSENESS [None]
  - LABORATORY TEST ABNORMAL [None]
  - LOW DENSITY LIPOPROTEIN INCREASED [None]
  - MYOCARDIAL ISCHAEMIA [None]
  - NEUROPATHY PERIPHERAL [None]
  - OBSTRUCTIVE AIRWAYS DISORDER [None]
  - PULMONARY HYPERTENSION [None]
  - RADICULOPATHY [None]
  - SOMNOLENCE [None]
  - XANTHELASMA [None]
